FAERS Safety Report 5756295-5 (Version None)
Quarter: 2008Q2

REPORT INFORMATION
  Report Type: 
  Country: None (occurrence: None)
  Receive Date: 20080528
  Receipt Date: 20080528
  Transmission Date: 20081010
  Serious: Yes (Hospitalization)
  Sender: FDA-Public Use
  Company Number: None

PATIENT
  Age: 51 Year
  Sex: Female
  Weight: 70 kg

DRUGS (2)
  1. LINEZOLID [Suspect]
     Indication: ENTEROCOCCAL INFECTION
     Dosage: 600MG BID PO
     Route: 048
     Dates: start: 20080429, end: 20080513
  2. LINEZOLID [Suspect]
     Indication: URINARY TRACT INFECTION
     Dosage: 600MG BID PO
     Route: 048
     Dates: start: 20080429, end: 20080513

REACTIONS (1)
  - PANCYTOPENIA [None]
